FAERS Safety Report 8413566-1 (Version None)
Quarter: 2012Q2

REPORT INFORMATION
  Report Type: 
  Country: None (occurrence: None)
  Receive Date: 20120605
  Receipt Date: 20120523
  Transmission Date: 20120825
  Serious: No
  Sender: FDA-Public Use
  Company Number: US-ASTRAZENECA-2012SE33591

PATIENT
  Age: 62 Year
  Sex: Male

DRUGS (2)
  1. VITAMIN TAB [Concomitant]
  2. NEXIUM [Suspect]
     Route: 048
     Dates: start: 20120428

REACTIONS (3)
  - DYSPEPSIA [None]
  - OESOPHAGEAL DISORDER [None]
  - INAPPROPRIATE SCHEDULE OF DRUG ADMINISTRATION [None]
